FAERS Safety Report 15309981 (Version 1)
Quarter: 2018Q3

REPORT INFORMATION
  Report Type: Spontaneous
  Country: US (occurrence: US)
  Receive Date: 20180823
  Receipt Date: 20180823
  Transmission Date: 20181010
  Serious: Yes (Other)
  Sender: FDA-Public Use
  Company Number: US-ELI_LILLY_AND_COMPANY-US201808007534

PATIENT
  Sex: Female

DRUGS (5)
  1. TRIANT?HC [Concomitant]
     Dosage: 37.5 UNK, UNK
  2. GABAPENTINE [Concomitant]
     Active Substance: GABAPENTIN
     Dosage: 800 MG, TID
  3. IBUPROFEN. [Concomitant]
     Active Substance: IBUPROFEN
     Dosage: 800 MG, UNK
  4. CYMBALTA [Suspect]
     Active Substance: DULOXETINE HYDROCHLORIDE
     Indication: PRODUCT USED FOR UNKNOWN INDICATION
     Dosage: 60 MG, UNKNOWN
     Route: 065
  5. POTASSIUM                          /07939101/ [Concomitant]

REACTIONS (4)
  - Hepatic fibrosis [Unknown]
  - Road traffic accident [Unknown]
  - Procedural complication [Unknown]
  - Hypertension [Unknown]

NARRATIVE: CASE EVENT DATE: 1996
